FAERS Safety Report 8983720 (Version 2)
Quarter: 2013Q1

REPORT INFORMATION
  Report Type: Spontaneous
  Country: AT (occurrence: AT)
  Receive Date: 20121224
  Receipt Date: 20130201
  Transmission Date: 20140127
  Serious: Yes (Hospitalization, Other)
  Sender: FDA-Public Use
  Company Number: PHHY2012AT118039

PATIENT
  Sex: Female

DRUGS (11)
  1. AFINITOR [Suspect]
     Indication: BREAST CANCER
  2. AROMASIN [Concomitant]
     Indication: BREAST CANCER
     Dosage: UNK
     Dates: start: 201203, end: 201209
  3. FARLUTAL [Concomitant]
     Dosage: 125 MG, UNK
  4. URBASON [Concomitant]
     Dosage: 40 MG, QD
  5. URSOFALK [Concomitant]
  6. KCL-RETARD [Concomitant]
  7. LOVENOX [Concomitant]
     Dosage: 60 MG, QD
     Route: 058
  8. SAMSCA [Concomitant]
     Dosage: 15 MG, QD
  9. LASIX [Concomitant]
     Dosage: 40 MG, QD
  10. MYCOSTATIN [Concomitant]
     Dosage: 4 ML, TID
     Route: 048
  11. EXEMESTAN [Concomitant]

REACTIONS (15)
  - Haematoma [Unknown]
  - Vanishing bile duct syndrome [Unknown]
  - Hepatitis cholestatic [Not Recovered/Not Resolved]
  - Haemangioma of liver [Unknown]
  - Jaundice [Unknown]
  - General physical health deterioration [Unknown]
  - Pneumonitis chemical [Recovered/Resolved]
  - Pulmonary embolism [Unknown]
  - Pneumonia [Unknown]
  - Dyspnoea [Recovering/Resolving]
  - Pseudomonas infection [Unknown]
  - Hyponatraemia [Recovering/Resolving]
  - Hyperkalaemia [Recovering/Resolving]
  - Joint swelling [Unknown]
  - Arthralgia [Unknown]
